FAERS Safety Report 22981921 (Version 2)
Quarter: 2024Q4

REPORT INFORMATION
  Report Type: Spontaneous
  Country: US (occurrence: US)
  Receive Date: 20230926
  Receipt Date: 20241016
  Transmission Date: 20250115
  Serious: No
  Sender: CELLTRION
  Company Number: US-CELLTRION INC.-2022US021945

PATIENT

DRUGS (1)
  1. INFLECTRA [Suspect]
     Active Substance: INFLIXIMAB-DYYB
     Indication: Crohn^s disease
     Dosage: 10 MG/KG AND HE IS UP TO 1540 MG OF INFLECTRA (HE IS COMPLETELY UP TO 1540 MG CURRENTLY)
     Route: 065

REACTIONS (2)
  - Weight increased [Unknown]
  - Prescribed overdose [Unknown]
